FAERS Safety Report 4592717-3 (Version None)
Quarter: 2005Q1

REPORT INFORMATION
  Report Type: 
  Country: None (occurrence: None)
  Receive Date: 20050228
  Receipt Date: 20050218
  Transmission Date: 20050727
  Serious: Yes (Hospitalization)
  Sender: FDA-Public Use
  Company Number: PHRM2005FR00877

PATIENT
  Age: 68 Year
  Sex: Male

DRUGS (7)
  1. LASILIX [Suspect]
     Dosage: 40 MG, TID
     Route: 048
     Dates: start: 20040701, end: 20050126
  2. LEXOMIL [Concomitant]
     Route: 048
     Dates: start: 19950701
  3. IMOVANE [Concomitant]
     Route: 048
     Dates: start: 19950701
  4. DIGOXIN [Concomitant]
     Dates: start: 19890101
  5. PREVISCAN [Concomitant]
     Dates: start: 19980101
  6. HYPERIUM [Suspect]
     Dosage: 1 MG, BID
     Route: 048
     Dates: start: 20030715, end: 20050124
  7. NITRIDERM TTS [Suspect]
     Dosage: 30 MG/DAY
     Route: 062
     Dates: start: 20030715

REACTIONS (8)
  - BLISTER [None]
  - BLOOD IMMUNOGLOBULIN E INCREASED [None]
  - ECZEMA [None]
  - EOSINOPHILIA [None]
  - NEURODERMATITIS [None]
  - PRURITUS [None]
  - THROMBOCYTOPENIA [None]
  - TOXIC SKIN ERUPTION [None]
